FAERS Safety Report 8858412 (Version 1)
Quarter: 2012Q4

REPORT INFORMATION
  Report Type: 
  Country: US (occurrence: US)
  Receive Date: 20121024
  Receipt Date: 20121024
  Transmission Date: 20130627
  Serious: No
  Sender: FDA-Public Use
  Company Number: US-B.I. PHARMACEUTICALS,INC./RIDGEFIELD-2012-BP-25655BP

PATIENT
  Sex: Female
  Weight: 64 kg

DRUGS (11)
  1. SPIRIVA [Suspect]
     Indication: CHRONIC OBSTRUCTIVE PULMONARY DISEASE
     Dosage: 18 mcg
     Route: 055
     Dates: start: 20120828
  2. BUPROPION [Concomitant]
     Indication: DEPRESSION
     Dosage: 300 mg
     Route: 048
  3. MULTIVITAMIN [Concomitant]
     Route: 048
  4. CALCIUM [Concomitant]
     Indication: PROPHYLAXIS
     Route: 048
  5. VITAMIN D [Concomitant]
     Indication: VITAMIN D DEFICIENCY
     Dosage: 1000 mg
     Route: 048
     Dates: start: 2011
  6. FEXOFENADINE [Concomitant]
     Indication: SEASONAL ALLERGY
     Route: 048
  7. ASPIRIN [Concomitant]
     Indication: PROPHYLAXIS
     Dosage: 81 mg
     Route: 048
  8. ASPIRIN [Concomitant]
     Indication: PROPHYLAXIS
  9. OMEPRAZOLE [Concomitant]
     Indication: BARRETT^S OESOPHAGUS
     Dosage: 40 mg
     Route: 048
  10. LICORICE [Concomitant]
     Indication: SMOKING CESSATION THERAPY
     Route: 048
     Dates: start: 2012, end: 201209
  11. NICODERM [Concomitant]
     Indication: SMOKING CESSATION THERAPY
     Dates: start: 2012, end: 201210

REACTIONS (2)
  - Rash maculo-papular [Not Recovered/Not Resolved]
  - Rash [Not Recovered/Not Resolved]
